FAERS Safety Report 6045572-9 (Version None)
Quarter: 2009Q1

REPORT INFORMATION
  Report Type: 
  Country: None (occurrence: None)
  Receive Date: 20090121
  Receipt Date: 20090110
  Transmission Date: 20090719
  Serious: Yes (Hospitalization)
  Sender: FDA-Public Use
  Company Number: US-JNJFOC-20090102498

PATIENT
  Sex: Female
  Weight: 58.97 kg

DRUGS (2)
  1. TOPAMAX [Suspect]
     Route: 048
  2. TOPAMAX [Suspect]
     Indication: EATING DISORDER
     Route: 048

REACTIONS (7)
  - EATING DISORDER [None]
  - HYPOAESTHESIA [None]
  - INFECTION [None]
  - PARAESTHESIA [None]
  - ROAD TRAFFIC ACCIDENT [None]
  - TIBIA FRACTURE [None]
  - WEIGHT DECREASED [None]
